FAERS Safety Report 6159507-1 (Version None)
Quarter: 2009Q2

REPORT INFORMATION
  Report Type: 
  Country: None (occurrence: None)
  Receive Date: 20090420
  Receipt Date: 20090216
  Transmission Date: 20091009
  Serious: No
  Sender: FDA-Public Use
  Company Number: US-ABBOTT-09P-163-0557680-00

PATIENT
  Sex: Female
  Weight: 36.32 kg

DRUGS (1)
  1. LUPRON DEPOT-PED 11.25 [Suspect]
     Indication: PRECOCIOUS PUBERTY
     Dosage: PEDIATRIC
     Route: 030
     Dates: start: 20080821

REACTIONS (1)
  - SKIN STRIAE [None]
